FAERS Safety Report 23952935 (Version 1)
Quarter: 2024Q2

REPORT INFORMATION
  Report Type: Report from Study
  Country: US (occurrence: US)
  Receive Date: 20240608
  Receipt Date: 20240608
  Transmission Date: 20240716
  Serious: Yes (Other)
  Sender: FDA-Public Use
  Company Number: US-ABBVIE-5789969

PATIENT
  Sex: Male

DRUGS (2)
  1. RINVOQ [Suspect]
     Active Substance: UPADACITINIB
     Indication: Eczema
     Dosage: FIRST ADMIN DATE 2024?FORM STRENGTH 15 MG
     Route: 048
  2. RINVOQ [Suspect]
     Active Substance: UPADACITINIB
     Indication: Eczema
     Dosage: FORM STRENGTH 15 MG
     Route: 048
     Dates: start: 2023, end: 202403

REACTIONS (3)
  - Knee arthroplasty [Unknown]
  - Eczema [Unknown]
  - Stress [Unknown]

NARRATIVE: CASE EVENT DATE: 20240101
